FAERS Safety Report 10795479 (Version 1)
Quarter: 2015Q1

REPORT INFORMATION
  Report Type: Spontaneous
  Country: DK (occurrence: DK)
  Receive Date: 20150215
  Receipt Date: 20150215
  Transmission Date: 20150721
  Serious: Yes (Other)
  Sender: FDA-Public Use
  Company Number: DK-ACTAVIS-2015-01680

PATIENT
  Age: 60 Year
  Sex: Female

DRUGS (4)
  1. OXYCODONE (UNKNOWN) [Suspect]
     Active Substance: OXYCODONE
     Dosage: 15 MG, TID
     Route: 065
  2. OXYCODONE (UNKNOWN) [Suspect]
     Active Substance: OXYCODONE
     Indication: ARTHRITIS
     Dosage: 15 MG, TID
     Route: 065
  3. HJERTEMAGNYL                       /00228701/ [Concomitant]
     Active Substance: ASPIRIN\MAGNESIUM OXIDE
     Indication: PRODUCT USED FOR UNKNOWN INDICATION
     Dosage: UNK
     Route: 065
  4. OXYCODONE (UNKNOWN) [Suspect]
     Active Substance: OXYCODONE
     Dosage: 20 MG, TID
     Route: 065

REACTIONS (5)
  - Urinary retention [Unknown]
  - Malaise [Unknown]
  - Constipation [Unknown]
  - Nausea [Unknown]
  - Hyperhidrosis [Unknown]
